FAERS Safety Report 5929406-6 (Version None)
Quarter: 2008Q3

REPORT INFORMATION
  Report Type: 
  Country: None (occurrence: None)
  Receive Date: 20080924
  Receipt Date: 20080305
  Transmission Date: 20090109
  Serious: Yes (Life-Threatening, Hospitalization, Disabling, Other)
  Sender: FDA-Public Use
  Company Number: US-WYE-H02994108

PATIENT
  Age: 51 Year
  Sex: Female
  Weight: 64.01 kg

DRUGS (16)
  1. RAPAMUNE [Suspect]
     Indication: PROPHYLAXIS AGAINST TRANSPLANT REJECTION
     Dosage: 5 MG 1X PER 1 DAY ; 4 MG 1X PER 1 DAY
     Dates: start: 20031110, end: 20061002
  2. RAPAMUNE [Suspect]
     Indication: PROPHYLAXIS AGAINST TRANSPLANT REJECTION
     Dosage: 5 MG 1X PER 1 DAY ; 4 MG 1X PER 1 DAY
     Dates: start: 20061003, end: 20071112
  3. RAPAMUNE [Suspect]
     Indication: PROPHYLAXIS AGAINST TRANSPLANT REJECTION
     Dosage: 5 MG 1X PER 1 DAY ; 4 MG 1X PER 1 DAY
     Dates: start: 20071113, end: 20080201
  4. PROGRAF [Suspect]
     Dates: end: 20031014
  5. CELLCEPT [Concomitant]
  6. ARANESP [Concomitant]
  7. GLUCOTROL XL [Concomitant]
  8. DIOVAN [Concomitant]
  9. FOLIC ACID [Concomitant]
  10. IMODIUM A-D [Concomitant]
  11. NEXIUM [Concomitant]
  12. NORCO [Concomitant]
  13. SODIUM BICARBONATE IN PLASTIC CONTAINER [Concomitant]
  14. TEMAZEPAM [Concomitant]
  15. TRAZODONE HCL [Concomitant]
  16. ENALAPRIL MALEATE [Concomitant]

REACTIONS (6)
  - CLOSTRIDIUM DIFFICILE COLITIS [None]
  - DEEP VEIN THROMBOSIS [None]
  - HERPES ZOSTER [None]
  - PNEUMONIA [None]
  - THROMBOTIC MICROANGIOPATHY [None]
  - URINARY TRACT INFECTION [None]
